FAERS Safety Report 9575309 (Version 1)
Quarter: 2013Q4

REPORT INFORMATION
  Report Type: Spontaneous
  Country: GR (occurrence: GR)
  Receive Date: 20131001
  Receipt Date: 20131001
  Transmission Date: 20140711
  Serious: Yes (Other)
  Sender: FDA-Public Use
  Company Number: PHHY2013GR107848

PATIENT
  Age: 22 Year
  Sex: Male

DRUGS (3)
  1. CARBOPLATIN [Suspect]
     Dosage: 6 MG/ML.MIN
     Dates: start: 201001
  2. ETOPOSIDE [Suspect]
     Dates: start: 201001
  3. CYCLOPHOSPHAMIDE [Suspect]
     Dates: start: 201001

REACTIONS (4)
  - Cystitis haemorrhagic [Recovered/Resolved]
  - Thrombocytopenia [Recovered/Resolved]
  - Neutropenia [Recovered/Resolved]
  - Mucosal inflammation [Recovered/Resolved]
